FAERS Safety Report 14027805 (Version 2)
Quarter: 2018Q1

REPORT INFORMATION
  Report Type: Spontaneous
  Country: US (occurrence: US)
  Receive Date: 20170929
  Receipt Date: 20180330
  Transmission Date: 20180508
  Serious: No
  Sender: FDA-Public Use
  Company Number: US-VERTEX PHARMACEUTICALS-2017-005252

PATIENT
  Age: 22 Year
  Sex: Female

DRUGS (1)
  1. ORKAMBI [Suspect]
     Active Substance: IVACAFTOR\LUMACAFTOR
     Indication: CYSTIC FIBROSIS
     Dosage: UNK
     Route: 048

REACTIONS (5)
  - Dyspnoea [Recovered/Resolved]
  - Pulmonary pain [Recovered/Resolved]
  - Migraine [Recovered/Resolved]
  - Urticaria [Recovered/Resolved]
  - Abdominal pain upper [Recovered/Resolved]
